FAERS Safety Report 7382953-5 (Version None)
Quarter: 2011Q1

REPORT INFORMATION
  Report Type: 
  Country: None (occurrence: None)
  Receive Date: 20110328
  Receipt Date: 20110328
  Transmission Date: 20110831
  Serious: Yes (Hospitalization)
  Sender: FDA-Public Use
  Company Number: None

PATIENT
  Sex: Female
  Weight: 67.3 kg

DRUGS (4)
  1. CYCLOPHOSPHAMIDE [Suspect]
     Dosage: 1040 MG
     Dates: end: 20110311
  2. DOXORUBICIN HCL [Suspect]
     Dosage: 105 MG
     Dates: end: 20110311
  3. PACLITAXEL [Suspect]
     Dosage: 980 MG
     Dates: end: 20110204
  4. NEULASTA [Suspect]
     Dosage: 6 MG
     Dates: end: 20110312

REACTIONS (5)
  - ANAEMIA [None]
  - NAUSEA [None]
  - DIZZINESS [None]
  - NEUTROPENIA [None]
  - FLUID INTAKE REDUCED [None]
